FAERS Safety Report 16132003 (Version 1)
Quarter: 2019Q1

REPORT INFORMATION
  Report Type: Spontaneous
  Country: US (occurrence: US)
  Receive Date: 20190329
  Receipt Date: 20190329
  Transmission Date: 20190418
  Serious: No
  Sender: FDA-Public Use
  Company Number: US-APOTEX-2019AP008957

PATIENT
  Age: 81 Year
  Sex: Female
  Weight: 58.51 kg

DRUGS (12)
  1. CYSTEX                             /01492901/ [Concomitant]
     Indication: BLADDER PAIN
     Dosage: 2 DF, TID
     Route: 048
  2. ESTRADIOL. [Concomitant]
     Active Substance: ESTRADIOL
     Indication: HOT FLUSH
     Dosage: 0.5 MG, Q.H.S.
     Route: 048
  3. FISH OIL [Concomitant]
     Active Substance: FISH OIL
     Indication: ARTHRITIS
     Dosage: 1200 MG, UNK
     Route: 065
  4. BIOTIN [Concomitant]
     Active Substance: BIOTIN
     Indication: NAIL DISORDER
  5. ATORVASTATIN CALCIUM. [Suspect]
     Active Substance: ATORVASTATIN CALCIUM
     Indication: BLOOD CHOLESTEROL
     Dosage: 10 MG, QD
     Route: 048
     Dates: start: 20170907, end: 20170907
  6. AMITRIPTYLINE [Concomitant]
     Active Substance: AMITRIPTYLINE
     Indication: SLEEP DISORDER
     Dosage: 10 MG, Q.H.S.
     Route: 048
  7. BIOTIN [Concomitant]
     Active Substance: BIOTIN
     Indication: HAIR DISORDER
     Dosage: 5000 MG, QD
     Route: 048
  8. LEVOTHYROXINE. [Concomitant]
     Active Substance: LEVOTHYROXINE
     Indication: THYROID DISORDER
     Dosage: 50 ?G, QD
     Route: 048
  9. CIPROFLOXACIN. [Concomitant]
     Active Substance: CIPROFLOXACIN
     Indication: BLADDER INJURY
     Dosage: 500 MG, BID
     Route: 048
     Dates: start: 20170901, end: 201709
  10. ZOLPIDEM [Concomitant]
     Active Substance: ZOLPIDEM\ZOLPIDEM TARTRATE
     Indication: SLEEP DISORDER
     Dosage: 1 DF, Q.H.S.
     Route: 048
  11. BIOTIN [Concomitant]
     Active Substance: BIOTIN
     Indication: SKIN DISORDER
  12. CENTRUM SILVER                     /02363801/ [Concomitant]
     Active Substance: MINERALS\VITAMINS
     Indication: SUPPLEMENTATION THERAPY
     Dosage: 1 DF, UNK
     Route: 048

REACTIONS (6)
  - Aphasia [Recovering/Resolving]
  - Dizziness [Recovering/Resolving]
  - Dysgraphia [Recovering/Resolving]
  - Thinking abnormal [Recovering/Resolving]
  - Memory impairment [Recovering/Resolving]
  - Crying [Recovering/Resolving]

NARRATIVE: CASE EVENT DATE: 20170907
